FAERS Safety Report 19936520 (Version 1)
Quarter: 2021Q4

REPORT INFORMATION
  Report Type: Spontaneous
  Country: AR (occurrence: AR)
  Receive Date: 20211009
  Receipt Date: 20211009
  Transmission Date: 20220303
  Serious: Yes (Hospitalization, Other)
  Sender: FDA-Public Use
  Company Number: AR-NOVARTISPH-NVSC2021AR229380

PATIENT
  Age: 84 Year
  Sex: Female

DRUGS (3)
  1. VALSARTAN [Suspect]
     Active Substance: VALSARTAN
     Indication: Cardiac valve disease
     Dosage: UNK
     Route: 065
     Dates: start: 2018, end: 202008
  2. SINTROM [Suspect]
     Active Substance: ACENOCOUMAROL
     Indication: Pulmonary embolism
     Dosage: 4 MG (TOOK IT FOR A YEAR)
     Route: 065
     Dates: start: 2015
  3. SINTROM [Suspect]
     Active Substance: ACENOCOUMAROL
     Dosage: UNK (USED 1/4, 1/2 TABLET)
     Route: 065

REACTIONS (3)
  - Embolism [Recovering/Resolving]
  - Pulmonary sequestration [Unknown]
  - Product use in unapproved indication [Unknown]

NARRATIVE: CASE EVENT DATE: 20200801
